FAERS Safety Report 26062913 (Version 2)
Quarter: 2025Q4

REPORT INFORMATION
  Report Type: Spontaneous
  Country: US (occurrence: US)
  Receive Date: 20251119
  Receipt Date: 20251231
  Transmission Date: 20260117
  Serious: Yes (Death)
  Sender: ALVOGEN
  Company Number: US-BMS-IMIDS-REMS_SI-1762966757760

PATIENT
  Age: 87 Year
  Sex: Female

DRUGS (1)
  1. LENALIDOMIDE [Suspect]
     Active Substance: LENALIDOMIDE
     Indication: Product used for unknown indication
     Dosage: STRENGTH: 25 MG

REACTIONS (2)
  - Myocardial infarction [Fatal]
  - Off label use [Unknown]
